FAERS Safety Report 7389434-3 (Version None)
Quarter: 2011Q2

REPORT INFORMATION
  Report Type: 
  Country: None (occurrence: None)
  Receive Date: 20110401
  Receipt Date: 20110325
  Transmission Date: 20111010
  Serious: Yes (Other)
  Sender: FDA-Public Use
  Company Number: US-BRISTOL-MYERS SQUIBB COMPANY-15628381

PATIENT
  Age: 7 Year
  Sex: Female

DRUGS (2)
  1. DASATINIB [Suspect]
     Indication: CHRONIC MYELOID LEUKAEMIA
  2. IMATINIB MESYLATE [Suspect]
     Indication: CHRONIC MYELOID LEUKAEMIA

REACTIONS (1)
  - BLOOD GROWTH HORMONE DECREASED [None]
